FAERS Safety Report 22046093 (Version 1)
Quarter: 2023Q1

REPORT INFORMATION
  Report Type: Spontaneous
  Country: US (occurrence: None)
  Receive Date: 20230228
  Receipt Date: 20230228
  Transmission Date: 20230418
  Serious: No
  Sender: FDA-Public Use
  Company Number: None

PATIENT
  Sex: Male

DRUGS (1)
  1. DOFETILIDE [Suspect]
     Active Substance: DOFETILIDE
     Indication: Atrial fibrillation
     Dosage: OTHER STRENGTH : 250MCG;?OTHER QUANTITY : 250MCG;?FREQUENCY : TWICE A DAY;?
     Route: 048
     Dates: start: 202106

REACTIONS (1)
  - Drug ineffective [None]
